FAERS Safety Report 5305028-5 (Version None)
Quarter: 2007Q2

REPORT INFORMATION
  Report Type: 
  Country: None (occurrence: None)
  Receive Date: 20070423
  Receipt Date: 20070411
  Transmission Date: 20071010
  Serious: Yes (Death, Hospitalization)
  Sender: FDA-Public Use
  Company Number: JP-PFIZER INC-2007014408

PATIENT
  Sex: Male
  Weight: 48 kg

DRUGS (9)
  1. ZYVOX [Suspect]
     Indication: PNEUMONIA STAPHYLOCOCCAL
     Route: 042
     Dates: start: 20050505, end: 20050509
  2. VANCOMYCIN HCL [Concomitant]
     Route: 042
  3. ROCEPHIN [Concomitant]
     Indication: PNEUMONIA
     Route: 042
  4. MEROPEN [Concomitant]
     Indication: PNEUMONIA
     Route: 042
     Dates: start: 20050424, end: 20050427
  5. SOLU-MEDROL [Concomitant]
     Indication: INTERSTITIAL LUNG DISEASE
     Route: 042
  6. ELASPOL [Concomitant]
     Indication: ACUTE RESPIRATORY DISTRESS SYNDROME
     Route: 042
  7. PROPOFOL [Concomitant]
     Route: 042
  8. LASIX [Concomitant]
     Indication: RENAL FAILURE ACUTE
     Dosage: DAILY DOSE:10MG/KG-FREQ:DAILY
     Route: 042
     Dates: start: 20050502, end: 20050508
  9. LASIX [Concomitant]
     Dates: start: 20050507, end: 20050514

REACTIONS (2)
  - RESPIRATORY FAILURE [None]
  - RHABDOMYOLYSIS [None]
